FAERS Safety Report 6277867-8 (Version None)
Quarter: 2009Q3

REPORT INFORMATION
  Report Type: 
  Country: None (occurrence: None)
  Receive Date: 20090722
  Receipt Date: 20090714
  Transmission Date: 20100115
  Serious: Yes (Hospitalization)
  Sender: FDA-Public Use
  Company Number: US-GILEAD-2009-0022828

PATIENT
  Sex: Female
  Weight: 68.1 kg

DRUGS (15)
  1. LETAIRIS [Suspect]
     Indication: PULMONARY ARTERIAL HYPERTENSION
     Route: 048
     Dates: start: 20090602
  2. METFORMIN HCL [Concomitant]
  3. LISINOPRIL [Concomitant]
  4. FUROSEMIDE [Concomitant]
  5. NORVASC [Concomitant]
  6. AMIODARONE [Concomitant]
  7. SINGULAIR [Concomitant]
  8. AVANDIA [Concomitant]
  9. ADVAIR HFA [Concomitant]
  10. METOCLOPRAMIDE [Concomitant]
  11. POTASSIUM CHLORIDE [Concomitant]
  12. ASPIRIN [Concomitant]
  13. MULTI-VITAMIN [Concomitant]
  14. CALCIUM [Concomitant]
  15. ASCORBIC ACID [Concomitant]

REACTIONS (1)
  - RENAL FAILURE [None]
